FAERS Safety Report 21246212 (Version 1)
Quarter: 2022Q3

REPORT INFORMATION
  Report Type: Other
  Country: US (occurrence: None)
  Receive Date: 20220824
  Receipt Date: 20220824
  Transmission Date: 20221026
  Serious: Yes (Other)
  Sender: FDA-Public Use
  Company Number: US-ROCHE-3153042

PATIENT
  Age: 55 Year
  Sex: Female

DRUGS (1)
  1. OCREVUS [Suspect]
     Active Substance: OCRELIZUMAB
     Indication: Multiple sclerosis
     Dosage: DATE OF INFUSION:19/JAN/2022. 23/JUL/2020.
     Route: 042
     Dates: start: 20190725

REACTIONS (6)
  - Pancreatic carcinoma [Not Recovered/Not Resolved]
  - Urinary retention [Unknown]
  - Erythema [Unknown]
  - Rash [Unknown]
  - COVID-19 [Unknown]
  - Sinusitis [Unknown]

NARRATIVE: CASE EVENT DATE: 20220601
